FAERS Safety Report 21594353 (Version 2)
Quarter: 2023Q1

REPORT INFORMATION
  Report Type: Report from Study
  Country: US (occurrence: US)
  Receive Date: 20221115
  Receipt Date: 20230104
  Transmission Date: 20230417
  Serious: No
  Sender: FDA-Public Use
  Company Number: US-ABBVIE-22K-163-4413132-00

PATIENT
  Sex: Female

DRUGS (4)
  1. IMBRUVICA [Suspect]
     Active Substance: IBRUTINIB
     Indication: Chronic lymphocytic leukaemia
     Dosage: STRENGTH: 420 MG
     Route: 048
     Dates: start: 20220510
  2. IMBRUVICA [Suspect]
     Active Substance: IBRUTINIB
     Indication: Chronic lymphocytic leukaemia
     Dosage: STRENGTH: 420 MG
     Route: 048
  3. IMBRUVICA [Suspect]
     Active Substance: IBRUTINIB
     Indication: Chronic lymphocytic leukaemia
     Dosage: STRENGTH: 420 MG
     Route: 048
     Dates: start: 202205
  4. IMBRUVICA [Suspect]
     Active Substance: IBRUTINIB
     Indication: Chronic lymphocytic leukaemia
     Route: 048

REACTIONS (19)
  - Dizziness [Unknown]
  - Feeding disorder [Unknown]
  - Blood urine present [Unknown]
  - Mass [Unknown]
  - Depression [Unknown]
  - Eating disorder [Unknown]
  - Denture wearer [Unknown]
  - Fatigue [Unknown]
  - Dyspepsia [Unknown]
  - Constipation [Unknown]
  - Diarrhoea [Unknown]
  - Pain [Unknown]
  - Paraesthesia [Unknown]
  - Vomiting [Unknown]
  - Nausea [Unknown]
  - Feeling cold [Unknown]
  - White blood cell count abnormal [Unknown]
  - Emotional disorder [Unknown]
  - Illness [Unknown]
